FAERS Safety Report 9635424 (Version 2)
Quarter: 2013Q4

REPORT INFORMATION
  Report Type: Spontaneous
  Country: US (occurrence: US)
  Receive Date: 20131021
  Receipt Date: 20131021
  Transmission Date: 20140711
  Serious: No
  Sender: FDA-Public Use
  Company Number: US-PURDUE-USA-2013-0103619

PATIENT
  Age: 50 Year
  Sex: Male

DRUGS (4)
  1. BUTRANS [Suspect]
     Indication: PAIN
     Dosage: 5 MCG/HR, UNK
     Route: 062
     Dates: start: 20130603, end: 20130610
  2. BUTRANS [Suspect]
     Dosage: 10 MCG/HR, UNK
     Route: 062
     Dates: start: 20130610, end: 20130613
  3. BUTRANS [Suspect]
     Dosage: 20 MCG/HR, UNK
     Route: 062
     Dates: start: 20130613, end: 20130619
  4. AMBIEN [Concomitant]
     Indication: INSOMNIA

REACTIONS (2)
  - Extra dose administered [Unknown]
  - Drug ineffective [Unknown]
